FAERS Safety Report 13023013 (Version 2)
Quarter: 2017Q1

REPORT INFORMATION
  Report Type: Spontaneous
  Country: DE (occurrence: DE)
  Receive Date: 20161213
  Receipt Date: 20170104
  Transmission Date: 20170428
  Serious: Yes (Life-Threatening, Hospitalization)
  Sender: FDA-Public Use
  Company Number: DE-TEVA-718209GER

PATIENT
  Age: 48 Year
  Sex: Female
  Weight: 90 kg

DRUGS (2)
  1. CLOZAPIN-RATIOPHARM 100 MG TABLETTEN [Suspect]
     Active Substance: CLOZAPINE
     Indication: SCHIZOPHRENIA
     Route: 048
     Dates: start: 20161018, end: 20161021
  2. CLOZAPIN-RATIOPHARM 100 MG TABLETTEN [Suspect]
     Active Substance: CLOZAPINE
     Route: 048
     Dates: start: 20161011, end: 20161017

REACTIONS (5)
  - Myocarditis [Recovered/Resolved]
  - Antipsychotic drug level [Recovered/Resolved]
  - Oedema [Recovered/Resolved]
  - Troponin T increased [Recovered/Resolved]
  - C-reactive protein increased [Recovered/Resolved]

NARRATIVE: CASE EVENT DATE: 20161017
